FAERS Safety Report 10049464 (Version 1)
Quarter: 2014Q2

REPORT INFORMATION
  Report Type: Spontaneous
  Country: DE (occurrence: DE)
  Receive Date: 20140401
  Receipt Date: 20140401
  Transmission Date: 20141212
  Serious: Yes (Other)
  Sender: FDA-Public Use
  Company Number: DE-ROCHE-1373704

PATIENT
  Age: 43 Year
  Sex: Male

DRUGS (2)
  1. MABTHERA [Suspect]
     Indication: B-CELL LYMPHOMA
     Dosage: 6 CYCLES
     Route: 065
  2. BENDAMUSTINE [Suspect]
     Indication: B-CELL LYMPHOMA
     Dosage: 6 CYCLES
     Route: 065

REACTIONS (1)
  - Histiocytosis [Unknown]
